FAERS Safety Report 6176310-7 (Version None)
Quarter: 2009Q2

REPORT INFORMATION
  Report Type: 
  Country: None (occurrence: None)
  Receive Date: 20090501
  Receipt Date: 20090429
  Transmission Date: 20091009
  Serious: Yes (Death)
  Sender: FDA-Public Use
  Company Number: US-B.I. PHARMACEUTICALS,INC./RIDGEFIELD-2009-BP-05452BP

PATIENT
  Sex: Female

DRUGS (17)
  1. SPIRIVA [Suspect]
     Indication: LUNG NEOPLASM MALIGNANT
     Dosage: 18MCG
     Route: 055
     Dates: end: 20090415
  2. SPIRIVA [Suspect]
     Indication: DYSPNOEA
  3. SPIRIVA [Suspect]
     Indication: COUGH
  4. PROAIR HFA [Concomitant]
  5. PLAVIX [Concomitant]
  6. GABAPENTIN [Concomitant]
  7. ATENOLOL [Concomitant]
  8. ASPIRIN [Concomitant]
  9. METROGEL [Concomitant]
  10. PRILOSEC [Concomitant]
  11. GLYBURIDE [Concomitant]
  12. LEVOXYL [Concomitant]
  13. HYDROCODONE BITARTRATE [Concomitant]
  14. REMERON [Concomitant]
  15. PREDNISONE [Concomitant]
  16. METFORMIN HCL [Concomitant]
  17. LACTULOSE [Concomitant]

REACTIONS (1)
  - MYOCARDIAL INFARCTION [None]
